FAERS Safety Report 4355422-4 (Version None)
Quarter: 2004Q2

REPORT INFORMATION
  Report Type: 
  Country: None (occurrence: None)
  Receive Date: 20040504
  Receipt Date: 20040422
  Transmission Date: 20050107
  Serious: Yes (Other)
  Sender: FDA-Public Use
  Company Number: DE-JNJFOC-20040404707

PATIENT
  Sex: 0

DRUGS (2)
  1. REOPRO [Suspect]
     Indication: ACUTE MYOCARDIAL INFARCTION
     Dosage: 0.25 MG/KG, 1 IN 1 TOTAL
  2. RETEVASE [Suspect]
     Indication: ACUTE MYOCARDIAL INFARCTION
     Dosage: 5 IU, 2 IN 1 TOTAL; 0.125 UG/KG/MIN FOR 12 HOURS

REACTIONS (2)
  - DISEASE RECURRENCE [None]
  - MYOCARDIAL INFARCTION [None]
